FAERS Safety Report 24922697 (Version 1)
Quarter: 2025Q1

REPORT INFORMATION
  Report Type: Report from Study
  Country: US (occurrence: US)
  Receive Date: 20250204
  Receipt Date: 20250204
  Transmission Date: 20250408
  Serious: No
  Sender: SUNOVION
  Company Number: US-SUMITOMO PHARMA SWITZERLAND GMBH-2025SPA000782

PATIENT

DRUGS (2)
  1. ORGOVYX [Suspect]
     Active Substance: RELUGOLIX
     Indication: Prostate cancer
     Dosage: 120 MG, QD
     Route: 048
     Dates: start: 20250111
  2. NUBEQA [Concomitant]
     Active Substance: DAROLUTAMIDE
     Route: 065

REACTIONS (4)
  - Blood glucose abnormal [Unknown]
  - Investigation abnormal [Unknown]
  - Loss of libido [Unknown]
  - Incorrect dose administered [Unknown]
